FAERS Safety Report 11182795 (Version 1)
Quarter: 2015Q2

REPORT INFORMATION
  Report Type: Spontaneous
  Country: US (occurrence: US)
  Receive Date: 20150611
  Receipt Date: 20150611
  Transmission Date: 20150821
  Serious: Yes (Other)
  Sender: FDA-Public Use
  Company Number: US-JNJFOC-20150604310

PATIENT

DRUGS (1)
  1. REMICADE [Suspect]
     Active Substance: INFLIXIMAB
     Indication: PRODUCT USED FOR UNKNOWN INDICATION
     Route: 042

REACTIONS (7)
  - Joint swelling [Unknown]
  - Ankylosing spondylitis [Unknown]
  - Knee arthroplasty [Unknown]
  - Cervical spinal stenosis [Unknown]
  - Lumbar spinal stenosis [Unknown]
  - Surgery [Unknown]
  - Sacroiliitis [Unknown]
